FAERS Safety Report 4301071-3 (Version None)
Quarter: 2004Q1

REPORT INFORMATION
  Report Type: 
  Country: None (occurrence: None)
  Receive Date: 20040219
  Receipt Date: 20040206
  Transmission Date: 20041129
  Serious: Yes (Other)
  Sender: FDA-Public Use
  Company Number: HQWYE869109FEB04

PATIENT
  Age: 36 Year
  Sex: Female
  Weight: 59.02 kg

DRUGS (8)
  1. EFFEXOR XR [Suspect]
     Indication: BIPOLAR DISORDER
     Dosage: OVERDOSE AMOUNT 750 MG, ORAL
     Route: 048
     Dates: start: 20020801, end: 20020801
  2. LORAZEPAM [Concomitant]
  3. TRILEPTAL [Concomitant]
  4. ACIPHEX [Concomitant]
  5. SYNTHROID [Concomitant]
  6. CELEBREX [Concomitant]
  7. PLAQUENIL [Concomitant]
  8. NASONEX [Concomitant]

REACTIONS (15)
  - ACCIDENTAL OVERDOSE [None]
  - CONDITION AGGRAVATED [None]
  - CONFUSIONAL STATE [None]
  - DEHYDRATION [None]
  - DELIRIUM [None]
  - HYPERHIDROSIS [None]
  - HYPOGLYCAEMIA [None]
  - INSOMNIA [None]
  - MEDICATION ERROR [None]
  - MUSCLE TWITCHING [None]
  - NIGHT SWEATS [None]
  - PALPITATIONS [None]
  - POLLAKIURIA [None]
  - SYSTEMIC LUPUS ERYTHEMATOSUS [None]
  - THIRST [None]
